FAERS Safety Report 5019572-1 (Version None)
Quarter: 2006Q2

REPORT INFORMATION
  Report Type: 
  Country: None (occurrence: None)
  Receive Date: 20060531
  Receipt Date: 20060525
  Transmission Date: 20061013
  Serious: Yes (Life-Threatening, Congenital Anomaly, Other)
  Sender: FDA-Public Use
  Company Number: 200612148GDS

PATIENT
  Sex: Female

DRUGS (3)
  1. CANESTEN (CLOTRIMAZOLE) [Suspect]
     Indication: CANDIDIASIS
     Dosage: 500 MG, TOTAL DAILY, VAGINAL
     Route: 067
     Dates: start: 20050502
  2. CANESTEN (CLOTRIMAZOLE) [Suspect]
     Indication: GENITAL DISCHARGE
     Dosage: 500 MG, TOTAL DAILY, VAGINAL
     Route: 067
     Dates: start: 20050502
  3. CANESTEN (CLOTRIMAZOLE) [Suspect]
     Indication: PRURITUS GENITAL
     Dosage: 500 MG, TOTAL DAILY, VAGINAL
     Route: 067
     Dates: start: 20050502

REACTIONS (4)
  - ABDOMINAL PAIN [None]
  - DRUG EXPOSURE DURING PREGNANCY [None]
  - INTRA-UTERINE DEATH [None]
  - PREMATURE SEPARATION OF PLACENTA [None]
